FAERS Safety Report 25110008 (Version 1)
Quarter: 2025Q1

REPORT INFORMATION
  Report Type: Spontaneous
  Country: US (occurrence: US)
  Receive Date: 20250324
  Receipt Date: 20250324
  Transmission Date: 20250409
  Serious: No
  Sender: SANOFI AVENTIS
  Company Number: US-SA-2025SA083940

PATIENT
  Age: 76 Year
  Sex: Female

DRUGS (9)
  1. DUPIXENT [Suspect]
     Active Substance: DUPILUMAB
     Indication: Restless legs syndrome
     Dosage: 300 MG, QOW
     Route: 058
     Dates: start: 202407
  2. ALPRAZOLAM [Concomitant]
     Active Substance: ALPRAZOLAM
  3. DIGOXIN [Concomitant]
     Active Substance: DIGOXIN
  4. ELIQUIS [Concomitant]
     Active Substance: APIXABAN
  5. MONTELUKAST [Concomitant]
     Active Substance: MONTELUKAST
  6. PAROXETINE HYDROCHLORIDE [Concomitant]
     Active Substance: PAROXETINE HYDROCHLORIDE
  7. PREDNISONE [Concomitant]
     Active Substance: PREDNISONE
  8. ROPINIROLE HYDROCHLORIDE [Concomitant]
     Active Substance: ROPINIROLE HYDROCHLORIDE
  9. TRELEGY ELLIPTA [Concomitant]
     Active Substance: FLUTICASONE FUROATE\UMECLIDINIUM BROMIDE\VILANTEROL TRIFENATATE

REACTIONS (3)
  - Product use in unapproved indication [Unknown]
  - Restless legs syndrome [Recovered/Resolved]
  - Condition aggravated [Recovered/Resolved]

NARRATIVE: CASE EVENT DATE: 20240701
